FAERS Safety Report 9116780 (Version 3)
Quarter: 2013Q2

REPORT INFORMATION
  Report Type: Spontaneous
  Country: US (occurrence: US)
  Receive Date: 20130225
  Receipt Date: 20130401
  Transmission Date: 20140414
  Serious: Yes (Death)
  Sender: FDA-Public Use
  Company Number: US-GENZYME-CAMP-1002751

PATIENT
  Sex: Male

DRUGS (1)
  1. CAMPATH [Suspect]
     Indication: PRODUCT USED FOR UNKNOWN INDICATION
     Dosage: 3/W (MON, WED, FRI)
     Route: 058
     Dates: start: 20130109, end: 20130118

REACTIONS (1)
  - Death [Fatal]
